FAERS Safety Report 25816918 (Version 1)
Quarter: 2025Q3

REPORT INFORMATION
  Report Type: Spontaneous
  Country: US (occurrence: US)
  Receive Date: 20250918
  Receipt Date: 20250918
  Transmission Date: 20251021
  Serious: Yes (Hospitalization)
  Sender: MYLAN
  Company Number: US-MYLANLABS-2025M1078840

PATIENT
  Age: 26 Year
  Sex: Male

DRUGS (2)
  1. METHOTREXATE [Suspect]
     Active Substance: METHOTREXATE
     Indication: Anaplastic large cell lymphoma T- and null-cell types
  2. METHOTREXATE [Suspect]
     Active Substance: METHOTREXATE
     Indication: Central nervous system lymphoma

REACTIONS (6)
  - Hemiparesis [Recovering/Resolving]
  - Mental status changes [Recovering/Resolving]
  - Dysarthria [Unknown]
  - Motor dysfunction [Unknown]
  - Cerebral disorder [Recovering/Resolving]
  - Magnetic resonance imaging head abnormal [Recovering/Resolving]
